FAERS Safety Report 9439231 (Version 3)
Quarter: 2013Q4

REPORT INFORMATION
  Report Type: Spontaneous
  Country: IT (occurrence: IT)
  Receive Date: 20130804
  Receipt Date: 20131023
  Transmission Date: 20140711
  Serious: Yes (Hospitalization)
  Sender: FDA-Public Use
  Company Number: IT-SANOFI-AVENTIS-2013SA077473

PATIENT
  Age: 80 Year
  Sex: Male

DRUGS (10)
  1. ENALAPRIL MALEATE [Suspect]
     Indication: HYPERTENSION
     Route: 048
     Dates: start: 20080101, end: 20130625
  2. LASIX [Suspect]
     Indication: HYPERTENSION
     Dosage: DOSE: 1 + 0.25+ 0.25 DF
     Route: 048
     Dates: end: 20130605
  3. LASIX [Suspect]
     Indication: HYPERTENSION
     Route: 048
     Dates: start: 20130606, end: 20130624
  4. CARVEDILOL [Concomitant]
     Indication: HYPERTENSION
     Dosage: DOSE: 6.25; UNITS UNSPECIFIED
     Route: 048
  5. CALCIUM CARBONATE [Concomitant]
  6. OMEPRAZOLE [Concomitant]
  7. CALCITRIOL [Concomitant]
  8. ZYLORIC [Concomitant]
     Dosage: STRENGTH: 300 MG
     Route: 048
  9. ARANESP [Concomitant]
     Dosage: STRENGTH: 80 MCG?ROUTE: INTRAVENOUS OR SUBCUTANEOUS
  10. COUMADIN [Concomitant]
     Indication: ATRIAL FIBRILLATION
     Dosage: STRENGTH: 5 MG
     Route: 048

REACTIONS (2)
  - Hyperkalaemia [Recovered/Resolved]
  - Renal failure acute [Recovered/Resolved]
